FAERS Safety Report 4293607-6 (Version None)
Quarter: 2004Q1

REPORT INFORMATION
  Report Type: 
  Country: None (occurrence: None)
  Receive Date: 20040212
  Receipt Date: 20030711
  Transmission Date: 20041129
  Serious: Yes (Other)
  Sender: FDA-Public Use
  Company Number: US-GLAXOSMITHKLINE-A0416215A

PATIENT
  Sex: Male

DRUGS (2)
  1. PAXIL [Suspect]
     Route: 048
     Dates: start: 19970101, end: 19970101
  2. CAFFEINE [Suspect]

REACTIONS (3)
  - DRUG INTERACTION [None]
  - MANIA [None]
  - NERVOUSNESS [None]
